FAERS Safety Report 6275485-9 (Version None)
Quarter: 2009Q3

REPORT INFORMATION
  Report Type: 
  Country: None (occurrence: None)
  Receive Date: 20090721
  Receipt Date: 20090717
  Transmission Date: 20100115
  Serious: Yes (Life-Threatening)
  Sender: FDA-Public Use
  Company Number: AT-JNJFOC-20090705383

PATIENT
  Age: 84 Year
  Sex: Male
  Weight: 75 kg

DRUGS (7)
  1. GALANTAMINE HYDROBROMIDE [Suspect]
     Indication: DEMENTIA
     Route: 048
  2. COSAAR PLUS [Concomitant]
     Dosage: 50MG/12.5MG
     Route: 048
  3. DIAMICRON MR [Concomitant]
     Route: 048
  4. PLAVIX [Concomitant]
     Route: 048
  5. ATORVASTATIN CALCIUM [Concomitant]
     Route: 048
  6. DILTIAZEM HYDROCHLORIDE [Concomitant]
     Route: 065
  7. METFORMIN HYDROCHLORIDE [Concomitant]
     Route: 065

REACTIONS (4)
  - ARRHYTHMIA [None]
  - CIRCULATORY COLLAPSE [None]
  - SYNCOPE [None]
  - VERTIGO [None]
